FAERS Safety Report 4709439-8 (Version None)
Quarter: 2005Q3

REPORT INFORMATION
  Report Type: 
  Country: None (occurrence: None)
  Receive Date: 20050708
  Receipt Date: 20050311
  Transmission Date: 20060218
  Serious: Yes (Death)
  Sender: FDA-Public Use
  Company Number: US-GLAXOSMITHKLINE-A0549428A

PATIENT
  Age: 30 Year
  Sex: Female
  Weight: 118.2 kg

DRUGS (5)
  1. LAMICTAL [Suspect]
     Indication: BIPOLAR DISORDER
     Route: 048
     Dates: start: 20040706, end: 20050311
  2. TRAZODONE [Concomitant]
     Route: 048
  3. GEODON [Concomitant]
     Dosage: 120MG PER DAY
     Route: 048
  4. PROVIGIL [Concomitant]
     Route: 048
  5. ATIVAN [Concomitant]
     Dosage: .5MG AS REQUIRED

REACTIONS (3)
  - CEREBROVASCULAR ACCIDENT [None]
  - MIGRAINE [None]
  - MYOCARDIAL INFARCTION [None]
